FAERS Safety Report 5777067-1 (Version None)
Quarter: 2008Q2

REPORT INFORMATION
  Report Type: 
  Country: None (occurrence: None)
  Receive Date: 20080618
  Receipt Date: 20080605
  Transmission Date: 20081010
  Serious: Yes (Hospitalization, Other)
  Sender: FDA-Public Use
  Company Number: JP-ASTRAZENECA-2008AP04531

PATIENT
  Age: 59 Year
  Sex: Female

DRUGS (10)
  1. SEROQUEL [Suspect]
     Route: 048
     Dates: end: 20080526
  2. SEROQUEL [Suspect]
     Dosage: 50 MG EVENING, 600 MG BEDTIME
     Route: 048
     Dates: start: 20080527, end: 20080528
  3. WYPAX [Concomitant]
     Route: 048
     Dates: end: 20080528
  4. BIPERIDEN HYDROCHLORIDE TAB [Concomitant]
     Route: 048
     Dates: end: 20080528
  5. RHYTHMY [Concomitant]
     Route: 048
     Dates: end: 20080528
  6. NITRAZEPAM [Concomitant]
     Route: 048
     Dates: end: 20080528
  7. HIRNAMIN [Concomitant]
     Route: 048
     Dates: end: 20080528
  8. LULLAN [Concomitant]
     Route: 048
     Dates: end: 20080528
  9. DEPAS [Concomitant]
     Route: 048
     Dates: end: 20080528
  10. RIVOTRIL [Concomitant]
     Route: 048
     Dates: end: 20080528

REACTIONS (4)
  - ALTERED STATE OF CONSCIOUSNESS [None]
  - BLOOD CREATINE PHOSPHOKINASE INCREASED [None]
  - NEUROLEPTIC MALIGNANT SYNDROME [None]
  - RHABDOMYOLYSIS [None]
